FAERS Safety Report 5381574-3 (Version None)
Quarter: 2007Q2

REPORT INFORMATION
  Report Type: 
  Country: None (occurrence: None)
  Receive Date: 20070629
  Receipt Date: 20070312
  Transmission Date: 20071010
  Serious: Yes (Other)
  Sender: FDA-Public Use
  Company Number: A03200702553

PATIENT
  Sex: Male

DRUGS (8)
  1. AMBIEN [Suspect]
     Indication: INSOMNIA
     Dosage: 12.5 MG PRN-ORAL
     Route: 048
     Dates: start: 20051220, end: 20060313
  2. LISINOPRIL [Concomitant]
  3. EZETIMIBE [Concomitant]
  4. DICLOFENAC SODIUM [Concomitant]
  5. ATORVASTATIN CALCIUM [Concomitant]
  6. NYQUIL [Concomitant]
  7. ALCOHOL [Concomitant]
  8. ANALGESICS NOS [Concomitant]

REACTIONS (4)
  - AMNESIA [None]
  - EATING DISORDER [None]
  - LOSS OF CONSCIOUSNESS [None]
  - SLEEP WALKING [None]
